FAERS Safety Report 12713676 (Version 1)
Quarter: 2016Q3

REPORT INFORMATION
  Report Type: Spontaneous
  Country: US (occurrence: US)
  Receive Date: 20160904
  Receipt Date: 20160904
  Transmission Date: 20161109
  Serious: No
  Sender: FDA-Public Use
  Company Number: US-ASTRAZENECA-2000UW01150

PATIENT
  Age: 78 Year
  Sex: Female

DRUGS (6)
  1. ARIMIDEX [Suspect]
     Active Substance: ANASTROZOLE
     Indication: BREAST CANCER
     Route: 048
     Dates: start: 199902
  2. MERIDIA [Concomitant]
     Active Substance: SIBUTRAMINE HYDROCHLORIDE
  3. NEXIUM [Suspect]
     Active Substance: ESOMEPRAZOLE MAGNESIUM
     Indication: ABDOMINAL PAIN UPPER
     Route: 048
     Dates: start: 201602
  4. PRILOSEC [Suspect]
     Active Substance: OMEPRAZOLE MAGNESIUM
     Indication: EPIGASTRIC DISCOMFORT
     Route: 048
  5. PRILOSEC [Suspect]
     Active Substance: OMEPRAZOLE MAGNESIUM
     Indication: ABDOMINAL PAIN UPPER
     Route: 048
  6. NEXIUM [Suspect]
     Active Substance: ESOMEPRAZOLE MAGNESIUM
     Indication: EPIGASTRIC DISCOMFORT
     Route: 048
     Dates: start: 201602

REACTIONS (14)
  - Hyperhidrosis [Unknown]
  - Blood disorder [Unknown]
  - Drug ineffective [Unknown]
  - Irritable bowel syndrome [Unknown]
  - Weight increased [Not Recovered/Not Resolved]
  - Dizziness [Not Recovered/Not Resolved]
  - Thirst [Unknown]
  - Gastric disorder [Unknown]
  - Off label use [Unknown]
  - Dry mouth [Not Recovered/Not Resolved]
  - Intentional product misuse [Unknown]
  - Cataract [Not Recovered/Not Resolved]
  - Sensitisation [Unknown]
  - Headache [Not Recovered/Not Resolved]
